FAERS Safety Report 22180606 (Version 1)
Quarter: 2023Q2

REPORT INFORMATION
  Report Type: Spontaneous
  Country: US (occurrence: None)
  Receive Date: 20230405
  Receipt Date: 20230405
  Transmission Date: 20230721
  Serious: Yes (Other)
  Sender: FDA-Public Use
  Company Number: None

PATIENT
  Age: 69 Year
  Sex: Female
  Weight: 68.4 kg

DRUGS (11)
  1. ACTEMRA ACTPEN [Suspect]
     Active Substance: TOCILIZUMAB
     Indication: Rheumatoid arthritis
     Dosage: FREQUENCY : EVERY OTHER WEEK;?
     Route: 058
     Dates: start: 20230103, end: 20230322
  2. AIMOVIG [Concomitant]
     Active Substance: ERENUMAB-AOOE
  3. PREMARIN [Concomitant]
     Active Substance: ESTROGENS, CONJUGATED
  4. PREDNISONE [Concomitant]
     Active Substance: PREDNISONE
  5. TRAMADOL [Concomitant]
     Active Substance: TRAMADOL
  6. VITAMIN B [Concomitant]
     Active Substance: VITAMIN B
  7. VITAMIN D [Concomitant]
     Active Substance: VITAMIN D NOS
  8. CALCIUM [Concomitant]
     Active Substance: CALCIUM
  9. GABAPENTIN [Concomitant]
     Active Substance: GABAPENTIN
  10. KLONOPIN [Concomitant]
     Active Substance: CLONAZEPAM
  11. TIZANIDINE [Concomitant]
     Active Substance: TIZANIDINE

REACTIONS (4)
  - Peripheral swelling [None]
  - Vision blurred [None]
  - Chest discomfort [None]
  - Headache [None]

NARRATIVE: CASE EVENT DATE: 20230329
